FAERS Safety Report 12658660 (Version 1)
Quarter: 2016Q3

REPORT INFORMATION
  Report Type: Spontaneous
  Country: US (occurrence: None)
  Receive Date: 20160816
  Receipt Date: 20160816
  Transmission Date: 20161109
  Serious: Yes (Hospitalization)
  Sender: FDA-Public Use
  Company Number: None

PATIENT
  Age: 80 Year
  Sex: Male
  Weight: 146.3 kg

DRUGS (1)
  1. METHAZOLAMIDE. [Suspect]
     Active Substance: METHAZOLAMIDE
     Indication: GLAUCOMA
     Dosage: MG EVERY DAY PO
     Route: 048
     Dates: start: 20160422, end: 20160512

REACTIONS (1)
  - Delirium [None]

NARRATIVE: CASE EVENT DATE: 20160520
